FAERS Safety Report 13272348 (Version 2)
Quarter: 2018Q2

REPORT INFORMATION
  Report Type: Spontaneous
  Country: US (occurrence: US)
  Receive Date: 20170227
  Receipt Date: 20180510
  Transmission Date: 20180711
  Serious: Yes (Other)
  Sender: FDA-Public Use
  Company Number: PHHY2017US029127

PATIENT
  Age: 65 Year
  Sex: Female

DRUGS (1)
  1. ZOLEDRONATE [Suspect]
     Active Substance: ZOLEDRONIC ACID
     Indication: OSTEOPOROSIS
     Dosage: UNK
     Route: 042

REACTIONS (5)
  - Jaw fracture [Recovered/Resolved]
  - Oral cavity fistula [Recovered/Resolved]
  - Pain in jaw [Recovered/Resolved]
  - Pathological fracture [Recovered/Resolved]
  - Osteonecrosis of jaw [Recovered/Resolved]
